FAERS Safety Report 8516343 (Version 3)
Quarter: 2015Q3

REPORT INFORMATION
  Report Type: Spontaneous
  Country: US (occurrence: US)
  Receive Date: 20120417
  Receipt Date: 20150921
  Transmission Date: 20151125
  Serious: No
  Sender: FDA-Public Use
  Company Number: US-ASTRAZENECA-2011SE31972

PATIENT
  Age: 725 Month
  Sex: Female
  Weight: 40.8 kg

DRUGS (4)
  1. NEXIUM [Suspect]
     Active Substance: ESOMEPRAZOLE MAGNESIUM
     Indication: GASTROOESOPHAGEAL REFLUX DISEASE
     Route: 048
     Dates: start: 2001, end: 201311
  2. AMITRIPTYLINE [Concomitant]
     Active Substance: AMITRIPTYLINE
     Indication: NERVOUS SYSTEM DISORDER
     Dates: start: 2001
  3. PROZAC [Concomitant]
     Active Substance: FLUOXETINE HYDROCHLORIDE
     Indication: NERVOUS SYSTEM DISORDER
     Dates: start: 2012
  4. NORVASC [Concomitant]
     Active Substance: AMLODIPINE BESYLATE
     Indication: HYPERTENSION
     Dates: start: 2012

REACTIONS (10)
  - Hypertension [Unknown]
  - Drug dose omission [Unknown]
  - Dizziness [Unknown]
  - Abdominal pain upper [Unknown]
  - Insomnia [Unknown]
  - Pain [Unknown]
  - Nausea [Unknown]
  - Intentional product use issue [Unknown]
  - Hypotension [Unknown]
  - Abdominal discomfort [Unknown]

NARRATIVE: CASE EVENT DATE: 201311
